FAERS Safety Report 4957743-0 (Version None)
Quarter: 2006Q1

REPORT INFORMATION
  Report Type: 
  Country: None (occurrence: None)
  Receive Date: 20060324
  Receipt Date: 20060316
  Transmission Date: 20060701
  Serious: Yes (Death, Hospitalization)
  Sender: FDA-Public Use
  Company Number: STA-AE-06-037

PATIENT
  Age: 67 Year
  Sex: Male

DRUGS (13)
  1. ACYCLOVIR [Suspect]
     Indication: HERPES SIMPLEX
     Dosage: 10 MG/KG/8HRS
  2. DIPYRIDAMOL [Concomitant]
  3. L-THYROXIN [Concomitant]
  4. ATORVASTATIN CALCIUM [Concomitant]
  5. ACETYLSALICYLIC ACID SRT [Concomitant]
  6. MINOCYCLIN [Concomitant]
  7. METHYLPREDNISOLONE [Concomitant]
  8. ETRETINATE [Concomitant]
  9. TOPICAL ANTISEPTICS [Concomitant]
  10. BETAMETHASONE DIPROPIIONATE [Concomitant]
  11. CIPROFLOXACIN IV [Concomitant]
  12. CLINDAMYCIN [Concomitant]
  13. FUCIDIN CREAM [Concomitant]

REACTIONS (36)
  - ABDOMINAL PAIN [None]
  - ACANTHOLYSIS [None]
  - ACUTE RESPIRATORY DISTRESS SYNDROME [None]
  - ARTERIOSCLEROSIS [None]
  - BACK PAIN [None]
  - BLOOD THYROID STIMULATING HORMONE INCREASED [None]
  - BRONCHOPNEUMONIA [None]
  - CONDITION AGGRAVATED [None]
  - DEHYDRATION [None]
  - EPIDERMAL NECROSIS [None]
  - ESCHERICHIA INFECTION [None]
  - GASTROINTESTINAL DISORDER [None]
  - HAEMODYNAMIC INSTABILITY [None]
  - HERPES SIMPLEX [None]
  - HERPES VIRUS INFECTION [None]
  - HYPERCALCAEMIA [None]
  - HYPERGLYCAEMIA [None]
  - INFLAMMATION [None]
  - INTERVERTEBRAL DISCITIS [None]
  - KERATOSIS FOLLICULAR [None]
  - LEUKOCYTOSIS [None]
  - LUNG ABSCESS [None]
  - MELAENA [None]
  - NAUSEA [None]
  - OXYGEN SATURATION DECREASED [None]
  - PATHOGEN RESISTANCE [None]
  - PRODUCTIVE COUGH [None]
  - PROTEUS INFECTION [None]
  - PSEUDOMONAS INFECTION [None]
  - PYREXIA [None]
  - RENAL FAILURE [None]
  - STAPHYLOCOCCAL INFECTION [None]
  - TACHYCARDIA [None]
  - VENTRICULAR HYPERTROPHY [None]
  - VENTRICULAR HYPOKINESIA [None]
  - VOMITING [None]
